FAERS Safety Report 19603748 (Version 1)
Quarter: 2021Q3

REPORT INFORMATION
  Report Type: Spontaneous
  Country: DE (occurrence: DE)
  Receive Date: 20210723
  Receipt Date: 20210723
  Transmission Date: 20211014
  Serious: Yes (Other)
  Sender: FDA-Public Use
  Company Number: DE-ASTRAZENECA-2021A623748

PATIENT
  Sex: Male
  Weight: 80 kg

DRUGS (7)
  1. QUETIAPIN [Suspect]
     Active Substance: QUETIAPINE
     Route: 065
     Dates: start: 20200622, end: 20200624
  2. ATOMOXETIN [Interacting]
     Active Substance: ATOMOXETINE HYDROCHLORIDE
     Route: 065
     Dates: start: 20200624, end: 20200624
  3. ATOMOXETIN [Interacting]
     Active Substance: ATOMOXETINE HYDROCHLORIDE
     Dosage: FROM HERE ON APPEARANCE OF THE UAW
     Route: 065
     Dates: start: 20200625, end: 20200910
  4. QUETIAPIN [Interacting]
     Active Substance: QUETIAPINE
     Dosage: B.A.W.
     Route: 065
     Dates: start: 20200918
  5. QUETIAPIN [Interacting]
     Active Substance: QUETIAPINE
     Route: 065
     Dates: start: 20200625, end: 20200628
  6. ATOMOXETIN [Interacting]
     Active Substance: ATOMOXETINE HYDROCHLORIDE
     Route: 065
     Dates: start: 20200619, end: 20200623
  7. QUETIAPIN [Interacting]
     Active Substance: QUETIAPINE
     Dosage: FROM HERE ON APPEARANCE OF THE UAW
     Route: 065
     Dates: start: 20200629, end: 20200917

REACTIONS (2)
  - Dysuria [Recovered/Resolved]
  - Pollakiuria [Recovered/Resolved]

NARRATIVE: CASE EVENT DATE: 20200703
